FAERS Safety Report 4298424-9 (Version None)
Quarter: 2004Q1

REPORT INFORMATION
  Report Type: 
  Country: None (occurrence: None)
  Receive Date: 20040218
  Receipt Date: 20030715
  Transmission Date: 20041129
  Serious: Yes (Other)
  Sender: FDA-Public Use
  Company Number: US-BRISTOL-MYERS SQUIBB COMPANY-12326880

PATIENT
  Age: 26 Year
  Sex: Male

DRUGS (1)
  1. STADOL [Suspect]
     Indication: MIGRAINE
     Dosage: DOSAGE: ONE SPRAY IN EACH NOSTRIL
     Route: 045
     Dates: start: 19930101, end: 20010101

REACTIONS (1)
  - DEPENDENCE [None]
